FAERS Safety Report 13182758 (Version 2)
Quarter: 2017Q3

REPORT INFORMATION
  Report Type: Spontaneous
  Country: US (occurrence: US)
  Receive Date: 20170203
  Receipt Date: 20170720
  Transmission Date: 20171127
  Serious: Yes (Hospitalization)
  Sender: FDA-Public Use
  Company Number: US-PFIZER INC-2017046763

PATIENT
  Age: 80 Year
  Sex: Male
  Weight: 116 kg

DRUGS (13)
  1. LYRICA [Suspect]
     Active Substance: PREGABALIN
     Indication: DIABETIC NEUROPATHY
     Dosage: 300 MG, 2X/DAY (MORNING AND NIGHT)
     Route: 048
     Dates: start: 2015, end: 20161207
  2. GARCINIA CAMBOGIA [Concomitant]
     Active Substance: HYDROXYCITRIC ACID
     Indication: WEIGHT DECREASED
     Dosage: 2 DF, DAILY
     Route: 048
     Dates: start: 201608, end: 201611
  3. IRON [Concomitant]
     Active Substance: IRON
     Indication: SUPPLEMENTATION THERAPY
     Dosage: 65, 1X/DAY
     Route: 048
     Dates: start: 2016, end: 201611
  4. FLUTICASONE. [Concomitant]
     Active Substance: FLUTICASONE
     Indication: COUGH
     Dosage: UNK
     Dates: start: 2016, end: 201611
  5. ATORVASTATIN [Concomitant]
     Active Substance: ATORVASTATIN
     Indication: BLOOD CHOLESTEROL ABNORMAL
     Dosage: 10 MG, 1X/DAY (HALF 20MG)
     Route: 048
     Dates: start: 2016
  6. OMEGA XL [Concomitant]
     Active Substance: DIETARY SUPPLEMENT
     Indication: ARTHROPATHY
     Dosage: UNK UNK, DAILY
     Route: 048
     Dates: start: 2016
  7. METFORMIN [Concomitant]
     Active Substance: METFORMIN HYDROCHLORIDE
     Indication: DIABETES MELLITUS
     Dosage: 1000 MG, DAILY; 500MG TABLET BY MOUTH, 2 A DAY
     Route: 048
  8. FOLIC ACID. [Concomitant]
     Active Substance: FOLIC ACID
     Indication: PULSE ABNORMAL
     Dosage: 800, 1X/DAY
     Route: 048
  9. LYRICA [Suspect]
     Active Substance: PREGABALIN
     Dosage: UNK, 1X/DAY
     Route: 048
  10. LISINOPRIL. [Concomitant]
     Active Substance: LISINOPRIL
     Indication: CARDIAC DISORDER
     Dosage: 5 MG, 1X/DAY
     Route: 048
     Dates: end: 20161207
  11. FLUTICASONE. [Concomitant]
     Active Substance: FLUTICASONE
     Dosage: 2 DF, 1X/DAY (AT NIGHT)
     Dates: end: 20161207
  12. ASPIRIN. [Concomitant]
     Active Substance: ASPIRIN
     Indication: PROPHYLAXIS
     Dosage: 81 MG, 1X/DAY (81)
     Route: 048
     Dates: start: 2016
  13. OMEGA XL [Concomitant]
     Active Substance: DIETARY SUPPLEMENT
     Indication: ARTHRITIS

REACTIONS (6)
  - Blood pressure increased [Not Recovered/Not Resolved]
  - Overdose [Unknown]
  - Palpitations [Unknown]
  - Urticaria [Recovered/Resolved]
  - Dyspnoea [Unknown]
  - Intentional product use issue [Unknown]

NARRATIVE: CASE EVENT DATE: 201611
